FAERS Safety Report 13852779 (Version 1)
Quarter: 2017Q3

REPORT INFORMATION
  Report Type: Spontaneous
  Country: US (occurrence: US)
  Receive Date: 20170809
  Receipt Date: 20170809
  Transmission Date: 20171127
  Serious: No
  Sender: FDA-Public Use
  Company Number: US-ROCHE-761836

PATIENT
  Sex: Female
  Weight: 55.3 kg

DRUGS (2)
  1. BONIVA [Suspect]
     Active Substance: IBANDRONATE SODIUM
     Route: 048
  2. BONIVA [Suspect]
     Active Substance: IBANDRONATE SODIUM
     Indication: OSTEOPENIA
     Dosage: FORM: PILL
     Route: 048

REACTIONS (6)
  - Fibromyalgia [Unknown]
  - Pain [Unknown]
  - Dysphagia [Unknown]
  - Insomnia [Unknown]
  - Wrong technique in product usage process [Unknown]
  - Foreign body in respiratory tract [Unknown]
